FAERS Safety Report 23553723 (Version 2)
Quarter: 2024Q1

REPORT INFORMATION
  Report Type: Spontaneous
  Country: US (occurrence: US)
  Receive Date: 20240222
  Receipt Date: 20240321
  Transmission Date: 20240410
  Serious: Yes (Other)
  Sender: FDA-Public Use
  Company Number: US-BEH-2024168716

PATIENT
  Age: 17 Year
  Sex: Male
  Weight: 67 kg

DRUGS (21)
  1. IDELVION [Suspect]
     Active Substance: COAGULATION FACTOR IX RECOMBINANT HUMAN
     Indication: Factor IX deficiency
     Dosage: 3350 INTERNATIONAL UNIT, QOW
     Route: 042
  2. IDELVION [Suspect]
     Active Substance: COAGULATION FACTOR IX RECOMBINANT HUMAN
     Indication: Factor IX deficiency
     Dosage: 3350 INTERNATIONAL UNIT, QOW
     Route: 042
  3. IDELVION [Suspect]
     Active Substance: COAGULATION FACTOR IX RECOMBINANT HUMAN
     Indication: Prophylaxis
     Dosage: 3350 INTERNATIONAL UNIT, PRN
     Route: 042
  4. IDELVION [Suspect]
     Active Substance: COAGULATION FACTOR IX RECOMBINANT HUMAN
     Indication: Prophylaxis
     Dosage: 3350 INTERNATIONAL UNIT, PRN
     Route: 042
  5. IDELVION [Suspect]
     Active Substance: COAGULATION FACTOR IX RECOMBINANT HUMAN
     Indication: Haemorrhage
     Dosage: 6700 INTERNATIONAL UNIT ONCE (100 UNITS/KG)
     Route: 042
  6. IDELVION [Suspect]
     Active Substance: COAGULATION FACTOR IX RECOMBINANT HUMAN
     Indication: Haemorrhage
     Dosage: 6700 INTERNATIONAL UNIT ONCE (100 UNITS/KG)
     Route: 042
  7. IDELVION [Suspect]
     Active Substance: COAGULATION FACTOR IX RECOMBINANT HUMAN
     Indication: Haemorrhage
     Dosage: 3565 INTERNATIONAL UNIT, QOW
     Route: 042
  8. IDELVION [Suspect]
     Active Substance: COAGULATION FACTOR IX RECOMBINANT HUMAN
     Indication: Haemorrhage
     Dosage: 3565 INTERNATIONAL UNIT, QOW
     Route: 042
  9. IDELVION [Suspect]
     Active Substance: COAGULATION FACTOR IX RECOMBINANT HUMAN
     Indication: Haemorrhage
     Dosage: 3565 INTERNATIONAL UNIT, PRN
     Route: 042
  10. IDELVION [Suspect]
     Active Substance: COAGULATION FACTOR IX RECOMBINANT HUMAN
     Indication: Haemorrhage
     Dosage: 3565 INTERNATIONAL UNIT, PRN
     Route: 042
  11. LYSTEDA [Concomitant]
     Active Substance: TRANEXAMIC ACID
     Indication: Mucosal haemorrhage
     Dosage: 1300 MILLIGRAM, PRN (2 TABLETS, EVERY 8 HOURS AS NEEDED FOR UP TO 7)
     Route: 048
     Dates: start: 20240201
  12. LYSTEDA [Concomitant]
     Active Substance: TRANEXAMIC ACID
     Indication: Wisdom teeth removal
     Dosage: POST PROCEDURE
     Dates: start: 20230824
  13. IDELVION [Suspect]
     Active Substance: COAGULATION FACTOR IX RECOMBINANT HUMAN
     Indication: Factor IX deficiency
     Dosage: 6460 INTERNATIONAL UNIT, PRN
     Route: 042
     Dates: start: 20211013
  14. IDELVION [Suspect]
     Active Substance: COAGULATION FACTOR IX RECOMBINANT HUMAN
     Indication: Factor IX deficiency
     Dosage: 6460 INTERNATIONAL UNIT, PRN
     Route: 042
     Dates: start: 20211013
  15. IDELVION [Suspect]
     Active Substance: COAGULATION FACTOR IX RECOMBINANT HUMAN
     Indication: Haemorrhage
     Dosage: 50 PERCENT CORRECTION
     Route: 065
     Dates: start: 20230824
  16. IDELVION [Suspect]
     Active Substance: COAGULATION FACTOR IX RECOMBINANT HUMAN
     Indication: Haemorrhage
     Dosage: 50 PERCENT CORRECTION
     Route: 065
     Dates: start: 20230824
  17. IDELVION [Suspect]
     Active Substance: COAGULATION FACTOR IX RECOMBINANT HUMAN
     Indication: Premedication
  18. IDELVION [Suspect]
     Active Substance: COAGULATION FACTOR IX RECOMBINANT HUMAN
     Indication: Premedication
  19. ALBUTEROL [Concomitant]
     Active Substance: ALBUTEROL
     Dosage: 1 DOSAGE FORM (PUFF) EVEY 6 HOURS
     Route: 055
     Dates: start: 20230703
  20. CELEBREX [Concomitant]
     Active Substance: CELECOXIB
     Dosage: 100 MILLIGRAM, PRN (IN THE MORNING AND AT BEDTIME)
     Route: 048
     Dates: start: 20220414
  21. ATARAX [Concomitant]
     Active Substance: HYDROXYZINE HYDROCHLORIDE
     Dosage: 25 MILLIGRAM, PRN (EVERY 8 (EIGHT) HOURS)
     Route: 048
     Dates: start: 20230703

REACTIONS (17)
  - Seizure [Unknown]
  - Loss of consciousness [Unknown]
  - Tremor [Unknown]
  - Respiratory arrest [Unknown]
  - Cardiac arrest [Unknown]
  - Seizure [Unknown]
  - Loss of consciousness [Unknown]
  - Tremor [Unknown]
  - Respiratory arrest [Unknown]
  - Cardiac arrest [Unknown]
  - No adverse event [Unknown]
  - Intentional product use issue [Unknown]
  - Anger [Unknown]
  - Contusion [Recovering/Resolving]
  - Wisdom teeth removal [Unknown]
  - Headache [Unknown]
  - Drug ineffective [Unknown]

NARRATIVE: CASE EVENT DATE: 20230824
